FAERS Safety Report 11458761 (Version 1)
Quarter: 2015Q3

REPORT INFORMATION
  Report Type: Spontaneous
  Country: US (occurrence: US)
  Receive Date: 20150904
  Receipt Date: 20150904
  Transmission Date: 20151125
  Serious: Yes (Other)
  Sender: FDA-Public Use
  Company Number: US-TEVA-578065USA

PATIENT
  Sex: Female

DRUGS (3)
  1. LEFLUNOMIDE. [Suspect]
     Active Substance: LEFLUNOMIDE
     Route: 065
  2. XELJANZ [Suspect]
     Active Substance: TOFACITINIB CITRATE
     Route: 065
  3. HYDROXYCHLOROQUINE [Suspect]
     Active Substance: HYDROXYCHLOROQUINE
     Route: 065

REACTIONS (13)
  - Musculoskeletal pain [Unknown]
  - Organising pneumonia [Unknown]
  - Musculoskeletal stiffness [Unknown]
  - Activities of daily living impaired [Unknown]
  - Movement disorder [Unknown]
  - Complex regional pain syndrome [Unknown]
  - Pain in extremity [Unknown]
  - Joint swelling [Unknown]
  - Pneumonitis [Unknown]
  - Interstitial lung disease [Unknown]
  - Cough [Not Recovered/Not Resolved]
  - Arthralgia [Unknown]
  - Poor quality sleep [Unknown]
